FAERS Safety Report 9814893 (Version 1)
Quarter: 2014Q1

REPORT INFORMATION
  Report Type: Spontaneous
  Country: JP (occurrence: JP)
  Receive Date: 20140113
  Receipt Date: 20140113
  Transmission Date: 20141002
  Serious: Yes (Other)
  Sender: FDA-Public Use
  Company Number: JP-GLAXOSMITHKLINE-B0959483A

PATIENT
  Age: 6 Decade
  Sex: Female

DRUGS (1)
  1. REVOLADE [Suspect]
     Route: 048
     Dates: start: 201210

REACTIONS (6)
  - Pulmonary embolism [Unknown]
  - Vena cava thrombosis [Unknown]
  - Pelvic venous thrombosis [Unknown]
  - Back pain [Unknown]
  - Oedema peripheral [Unknown]
  - Device related infection [Unknown]
